FAERS Safety Report 16485146 (Version 1)
Quarter: 2019Q2

REPORT INFORMATION
  Report Type: Spontaneous
  Country: US (occurrence: US)
  Receive Date: 20190517
  Receipt Date: 20190517
  Transmission Date: 20190711
  Serious: Yes (Hospitalization)
  Sender: FDA-Public Use
  Company Number: None

PATIENT
  Age: 39 Year
  Sex: Male

DRUGS (11)
  1. ELIQUIS [Concomitant]
     Active Substance: APIXABAN
  2. ATORVASTATIN [Concomitant]
     Active Substance: ATORVASTATIN
  3. BRILNTA [Concomitant]
  4. COUMADIN [Concomitant]
     Active Substance: WARFARIN SODIUM
  5. ASPIRIN. [Concomitant]
     Active Substance: ASPIRIN
  6. PLAQUENIL [Concomitant]
     Active Substance: HYDROXYCHLOROQUINE SULFATE
  7. CARVEDILOL. [Concomitant]
     Active Substance: CARVEDILOL
  8. PREDNISONE. [Concomitant]
     Active Substance: PREDNISONE
  9. HYDROXYCHLOROQUINE S 200MG MYLAN PHARMACEUTICALS INC [Suspect]
     Active Substance: HYDROXYCHLOROQUINE
     Indication: TRANSPLANT
     Route: 048
     Dates: start: 20190417
  10. MYCOPHENOLATE 500MGT TAB [Suspect]
     Active Substance: MYCOPHENOLIC ACID
     Indication: TRANSPLANT
     Route: 048
     Dates: start: 20180911
  11. LISINOPRIL. [Concomitant]
     Active Substance: LISINOPRIL

REACTIONS (1)
  - Myocardial infarction [None]

NARRATIVE: CASE EVENT DATE: 201904
